FAERS Safety Report 7916847-0 (Version None)
Quarter: 2011Q4

REPORT INFORMATION
  Report Type: 
  Country: None (occurrence: None)
  Receive Date: 20111116
  Receipt Date: 20111104
  Transmission Date: 20120403
  Serious: Yes (Hospitalization)
  Sender: FDA-Public Use
  Company Number: FR-BRISTOL-MYERS SQUIBB COMPANY-16231110

PATIENT
  Age: 60 Year
  Sex: Female

DRUGS (3)
  1. HYDROCORTISONE [Concomitant]
     Indication: ADRENAL INSUFFICIENCY
  2. FLUDROCORTISONE ACETATE [Concomitant]
     Indication: ADRENAL INSUFFICIENCY
  3. LYSODREN [Suspect]
     Indication: ADRENOCORTICAL CARCINOMA
     Dosage: START WITH 1G 3IN 1 D 7JUN2011-28AUG11(82DAYS) 1.5GM:29AUG2011
     Route: 048
     Dates: start: 20110607

REACTIONS (1)
  - NEUTROPENIA [None]
